FAERS Safety Report 8765011 (Version 2)
Quarter: 2012Q4

REPORT INFORMATION
  Report Type: Report from Study
  Country: US (occurrence: US)
  Receive Date: 20120903
  Receipt Date: 20120913
  Transmission Date: 20130627
  Serious: Yes (Hospitalization)
  Sender: FDA-Public Use
  Company Number: US-BIOGENIDEC-2012BI033494

PATIENT
  Age: 37 Year
  Sex: Female
  Weight: 87 kg

DRUGS (8)
  1. TYSABRI [Suspect]
     Indication: CROHN^S DISEASE
     Route: 042
     Dates: start: 20120525
  2. CALCIUM-CHOLECALCIFEROL [Concomitant]
     Indication: VITAMIN D DEFICIENCY
     Route: 048
  3. CYANOCOBALAMIN [Concomitant]
     Indication: MEDICAL DIET
     Route: 048
  4. HEXAVITAMIN [Concomitant]
     Indication: MEDICAL DIET
     Route: 048
  5. SYNTHROID [Concomitant]
     Indication: GOITRE
     Route: 048
  6. SYNTHROID [Concomitant]
     Indication: GOITRE
     Route: 048
     Dates: start: 20120807
  7. ATIVAN [Concomitant]
  8. PRILOSEC [Concomitant]
     Indication: GASTROOESOPHAGEAL REFLUX DISEASE
     Route: 048

REACTIONS (1)
  - Goitre [Recovered/Resolved]
